FAERS Safety Report 6534495-4 (Version None)
Quarter: 2010Q1

REPORT INFORMATION
  Report Type: 
  Country: None (occurrence: None)
  Receive Date: 20100112
  Receipt Date: 20100104
  Transmission Date: 20100710
  Serious: Yes (Other)
  Sender: FDA-Public Use
  Company Number: US-PFIZER INC-2010000590

PATIENT
  Sex: Male
  Weight: 81.646 kg

DRUGS (9)
  1. LIPITOR [Suspect]
     Indication: BLOOD CHOLESTEROL INCREASED
     Dosage: 10 MG, 1X/DAY
     Route: 048
     Dates: start: 20080101, end: 20090101
  2. LIPITOR [Suspect]
     Dosage: 50 MG, 1X/DAY
     Dates: start: 20090101
  3. PROTONIX [Concomitant]
     Indication: ULCER
  4. METOPROLOL TARTRATE [Concomitant]
     Dosage: FREQUENCY: 2X/DAY,
  5. PLAVIX [Concomitant]
     Dosage: UNK
  6. ACETYLSALICYLIC ACID [Concomitant]
  7. CARDIZEM [Concomitant]
  8. ISOSORBIDE [Concomitant]
  9. TAMSULOSIN [Concomitant]

REACTIONS (5)
  - ARTHRALGIA [None]
  - BLOOD CHOLESTEROL DECREASED [None]
  - CHEST PAIN [None]
  - MYALGIA [None]
  - VENOUS OCCLUSION [None]
